FAERS Safety Report 8456615-7 (Version None)
Quarter: 2012Q2

REPORT INFORMATION
  Report Type: 
  Country: None (occurrence: None)
  Receive Date: 20120621
  Receipt Date: 20120611
  Transmission Date: 20120825
  Serious: Yes (Other)
  Sender: FDA-Public Use
  Company Number: US-ROCHE-791039

PATIENT
  Sex: Male
  Weight: 52.21 kg

DRUGS (2)
  1. ACCUTANE [Suspect]
     Dates: start: 20000328, end: 20000601
  2. ACCUTANE [Suspect]
     Indication: ACNE
     Route: 065
     Dates: start: 19990401, end: 19990801

REACTIONS (7)
  - INTESTINAL OBSTRUCTION [None]
  - DEPRESSION [None]
  - LIP DRY [None]
  - INFLAMMATORY BOWEL DISEASE [None]
  - STRESS [None]
  - IRRITABLE BOWEL SYNDROME [None]
  - COLITIS ULCERATIVE [None]
